FAERS Safety Report 14454536 (Version 1)
Quarter: 2018Q1

REPORT INFORMATION
  Report Type: Spontaneous
  Country: CA (occurrence: CA)
  Receive Date: 20180129
  Receipt Date: 20180129
  Transmission Date: 20180509
  Serious: Yes (Life-Threatening, Hospitalization, Other)
  Sender: FDA-Public Use
  Company Number: CA-MYLANLABS-2018M1005785

PATIENT
  Age: 76 Year
  Sex: Female

DRUGS (1)
  1. WARFARIN [Suspect]
     Active Substance: WARFARIN
     Indication: PULMONARY EMBOLISM
     Dosage: UNK
     Route: 048

REACTIONS (7)
  - Respiratory distress [Unknown]
  - Haematuria [Unknown]
  - Myalgia [Unknown]
  - Stenosis [Unknown]
  - Nerve root compression [Unknown]
  - Spinal epidural haematoma [Recovered/Resolved]
  - Quadriplegia [Unknown]
